FAERS Safety Report 24589085 (Version 2)
Quarter: 2024Q4

REPORT INFORMATION
  Report Type: Spontaneous
  Country: US (occurrence: US)
  Receive Date: 20241107
  Receipt Date: 20241122
  Transmission Date: 20250115
  Serious: Yes (Life-Threatening, Hospitalization)
  Sender: TEVA
  Company Number: US-TEVA-VS-3261374

PATIENT
  Sex: Female

DRUGS (11)
  1. CEPHALEXIN [Suspect]
     Active Substance: CEPHALEXIN
     Indication: Necrotising fasciitis
     Route: 065
  2. PIPERACILLIN SODIUM\TAZOBACTAM SODIUM [Suspect]
     Active Substance: PIPERACILLIN SODIUM\TAZOBACTAM SODIUM
     Indication: Necrotising fasciitis
     Route: 042
  3. CEFTAZIDIME [Suspect]
     Active Substance: CEFTAZIDIME
     Indication: Necrotising fasciitis
     Route: 061
  4. GENTAMICIN [Suspect]
     Active Substance: GENTAMICIN
     Indication: Necrotising fasciitis
     Route: 042
  5. CLINDAMYCIN [Suspect]
     Active Substance: CLINDAMYCIN
     Indication: Necrotising fasciitis
     Route: 042
  6. PREDNISOLONE [Suspect]
     Active Substance: PREDNISOLONE
     Indication: Necrotising fasciitis
     Dosage: DROPS
     Route: 061
  7. CEFEPIME [Suspect]
     Active Substance: CEFEPIME HYDROCHLORIDE
     Indication: Necrotising fasciitis
     Route: 042
  8. AMPHOTERICIN B [Suspect]
     Active Substance: AMPHOTERICIN B
     Indication: Necrotising fasciitis
     Dosage: DROPS
     Route: 061
  9. TOBRAMYCIN [Suspect]
     Active Substance: TOBRAMYCIN\TOBRAMYCIN SULFATE
     Indication: Necrotising fasciitis
     Route: 042
  10. VANCOMYCIN [Suspect]
     Active Substance: VANCOMYCIN
     Indication: Necrotising fasciitis
     Route: 042
  11. TOBRAMYCIN [Suspect]
     Active Substance: TOBRAMYCIN\TOBRAMYCIN SULFATE
     Indication: Necrotising fasciitis
     Route: 061

REACTIONS (1)
  - Drug ineffective [Unknown]
